FAERS Safety Report 7149255-3 (Version None)
Quarter: 2010Q4

REPORT INFORMATION
  Report Type: 
  Country: None (occurrence: None)
  Receive Date: 20101209
  Receipt Date: 20101207
  Transmission Date: 20110411
  Serious: Yes (Other)
  Sender: FDA-Public Use
  Company Number: GXKR2010DE13760

PATIENT
  Sex: Female

DRUGS (1)
  1. PARACETAMOL HEXAL (NGX) [Suspect]
     Route: 048

REACTIONS (5)
  - ANAPHYLACTIC SHOCK [None]
  - DIARRHOEA [None]
  - HYPERHIDROSIS [None]
  - LOSS OF CONSCIOUSNESS [None]
  - MUSCLE SPASMS [None]
